FAERS Safety Report 5366819-8 (Version None)
Quarter: 2007Q2

REPORT INFORMATION
  Report Type: 
  Country: None (occurrence: None)
  Receive Date: 20070622
  Receipt Date: 20070131
  Transmission Date: 20071010
  Serious: No
  Sender: FDA-Public Use
  Company Number: A0637572A

PATIENT
  Age: 39 Year
  Sex: Male

DRUGS (2)
  1. ZYBAN [Suspect]
     Route: 048
  2. NICODERM CQ [Suspect]
     Dosage: 21MG PER DAY
     Route: 062
     Dates: start: 20070123, end: 20070129

REACTIONS (4)
  - DIZZINESS [None]
  - DRUG INEFFECTIVE [None]
  - FREQUENT BOWEL MOVEMENTS [None]
  - STOMACH DISCOMFORT [None]
